FAERS Safety Report 9160578 (Version 2)
Quarter: 2014Q1

REPORT INFORMATION
  Report Type: Spontaneous
  Country: US (occurrence: US)
  Receive Date: 20130313
  Receipt Date: 20140304
  Transmission Date: 20141002
  Serious: No
  Sender: FDA-Public Use
  Company Number: US-B.I. PHARMACEUTICALS,INC./RIDGEFIELD-2013-BI-06480BP

PATIENT
  Age: 77 Year
  Sex: Female

DRUGS (13)
  1. SPIRIVA [Suspect]
     Indication: CHRONIC OBSTRUCTIVE PULMONARY DISEASE
     Dosage: 18 MCG
     Route: 055
  2. LANTUS [Concomitant]
     Route: 058
  3. LISINOPRIL [Concomitant]
     Route: 048
  4. CLARINEX [Concomitant]
     Route: 048
  5. GLUCOPHAGE [Concomitant]
     Route: 048
  6. NEXIUM [Concomitant]
     Route: 048
  7. VESICARE [Concomitant]
     Route: 048
  8. RESTORIL [Concomitant]
     Route: 048
  9. ATIVAN [Concomitant]
     Route: 048
  10. TRILIPIX [Concomitant]
     Route: 048
  11. ASTEPRO NASAL SPRAY [Concomitant]
     Route: 045
  12. VICODIN [Concomitant]
     Route: 048
  13. ONDANSETRON [Concomitant]
     Route: 048

REACTIONS (6)
  - Hearing impaired [Not Recovered/Not Resolved]
  - Bronchitis [Recovered/Resolved]
  - Pneumonia [Recovered/Resolved]
  - Increased upper airway secretion [Not Recovered/Not Resolved]
  - Ear disorder [Not Recovered/Not Resolved]
  - Product quality issue [Recovered/Resolved]
